FAERS Safety Report 15030731 (Version 1)
Quarter: 2018Q2

REPORT INFORMATION
  Report Type: Spontaneous
  Country: DE (occurrence: DE)
  Receive Date: 20180619
  Receipt Date: 20180619
  Transmission Date: 20180711
  Serious: Yes (Death)
  Sender: FDA-Public Use
  Company Number: DE-MALLINCKRODT-T201705593

PATIENT

DRUGS (1)
  1. UVADEX [Suspect]
     Active Substance: METHOXSALEN
     Indication: COMPLICATIONS OF TRANSPLANTED LUNG
     Dosage: 12 CYCLES OF ECP
     Route: 057

REACTIONS (2)
  - Air embolism [Fatal]
  - Product use in unapproved indication [Unknown]
